FAERS Safety Report 4437767-2 (Version None)
Quarter: 2004Q3

REPORT INFORMATION
  Report Type: 
  Country: None (occurrence: None)
  Receive Date: 20040830
  Receipt Date: 20040830
  Transmission Date: 20050211
  Serious: Yes (Life-Threatening)
  Sender: FDA-Public Use
  Company Number: None

PATIENT
  Age: 60 Year
  Sex: Female
  Weight: 102.0593 kg

DRUGS (1)
  1. TOPAMAX [Suspect]
     Indication: NEUROPATHY PERIPHERAL
     Dosage: 200 MG QHS ORAL
     Route: 048
     Dates: start: 20040827, end: 20040827

REACTIONS (3)
  - BLOOD POTASSIUM DECREASED [None]
  - METABOLIC ACIDOSIS [None]
  - PARAESTHESIA [None]
